FAERS Safety Report 8438306-1 (Version None)
Quarter: 2012Q2

REPORT INFORMATION
  Report Type: 
  Country: None (occurrence: None)
  Receive Date: 20120614
  Receipt Date: 20120604
  Transmission Date: 20120825
  Serious: Yes (Hospitalization, Other)
  Sender: FDA-Public Use
  Company Number: US-BAXTER-2012BAX008115

PATIENT
  Age: 28 Year
  Sex: Female

DRUGS (11)
  1. ETOPOSIDE [Suspect]
     Route: 042
  2. CISPLATIN [Suspect]
     Route: 042
  3. BLEOMYCIN SULFATE [Suspect]
     Indication: SMALL CELL CARCINOMA
     Route: 042
  4. PEGFILGRASTIM [Concomitant]
     Indication: PROPHYLAXIS
  5. DOXORUBICIN HCL [Suspect]
     Route: 042
  6. CYCLOPHOSPHAMIDE [Suspect]
     Route: 042
  7. DOXORUBICIN HCL [Suspect]
     Indication: SMALL CELL CARCINOMA
     Route: 042
  8. CISPLATIN [Suspect]
     Indication: SMALL CELL CARCINOMA
     Route: 042
  9. VINBLASTINE SULFATE [Suspect]
     Indication: SMALL CELL CARCINOMA
     Route: 042
  10. ETOPOSIDE [Suspect]
     Indication: SMALL CELL CARCINOMA
     Route: 042
  11. CYCLOPHOSPHAMIDE [Suspect]
     Indication: SMALL CELL CARCINOMA
     Route: 042

REACTIONS (6)
  - NAUSEA [None]
  - PANCYTOPENIA [None]
  - VOMITING [None]
  - PERIPHERAL SENSORIMOTOR NEUROPATHY [None]
  - RENAL FAILURE ACUTE [None]
  - FEBRILE NEUTROPENIA [None]
